FAERS Safety Report 25994879 (Version 4)
Quarter: 2025Q4

REPORT INFORMATION
  Report Type: Report from Study
  Country: US (occurrence: US)
  Receive Date: 20251104
  Receipt Date: 20251230
  Transmission Date: 20260117
  Serious: Yes (Other)
  Sender: ROCHE
  Company Number: US-ROCHE-10000311953

PATIENT
  Age: 41 Year
  Sex: Male
  Weight: 91.53 kg

DRUGS (15)
  1. HERCEPTIN [Suspect]
     Active Substance: TRASTUZUMAB
     Indication: Gastric cancer
     Dosage: STRENGTH: 4 MG/KG, DATE OF SERVICE ADDED: 24/OCT/2025
     Route: 042
  2. HERCEPTIN [Suspect]
     Active Substance: TRASTUZUMAB
     Indication: Metastases to peritoneum
  3. FOSAPREPITANT INJ [Concomitant]
     Route: 042
  4. Diphenhydramine HCI Inj [Concomitant]
     Route: 042
  5. NIVOLUMAB INJ [Concomitant]
     Route: 042
  6. ATROPINE SULFATE INJ [Concomitant]
     Route: 042
  7. IRINOTECAN INJ [Concomitant]
     Route: 042
  8. FAMOTIDINE INJ [Concomitant]
     Route: 042
  9. DEXAMETHASONE SODIUM PHOS INJ [Concomitant]
     Route: 042
  10. LEUCOVORIN CALCIUM INJ [Concomitant]
     Route: 042
  11. FLUOROURACIL SODIUM [Concomitant]
     Active Substance: FLUOROURACIL SODIUM
     Route: 042
  12. FLUOROURACIL SODIUM [Concomitant]
     Active Substance: FLUOROURACIL SODIUM
     Route: 042
  13. CYANOCOBALAMIN [Concomitant]
     Active Substance: CYANOCOBALAMIN
     Route: 030
  14. APREPITANT IV [Concomitant]
     Route: 042
  15. PALONOSETRON [Concomitant]
     Active Substance: PALONOSETRON
     Route: 042

REACTIONS (10)
  - Fatigue [Unknown]
  - Anaemia [Unknown]
  - Folate deficiency [Unknown]
  - Vitamin B12 deficiency [Unknown]
  - Neuropathy peripheral [Unknown]
  - Off label use [Unknown]
  - Diarrhoea [Unknown]
  - Nausea [Unknown]
  - Vomiting [Unknown]
  - Depression [Unknown]
